FAERS Safety Report 6426059-8 (Version None)
Quarter: 2009Q4

REPORT INFORMATION
  Report Type: 
  Country: None (occurrence: None)
  Receive Date: 20091104
  Receipt Date: 20091029
  Transmission Date: 20100525
  Serious: Yes (Other)
  Sender: FDA-Public Use
  Company Number: US-BIOGENIDEC-2009BI022533

PATIENT
  Age: 29 Year
  Sex: Female

DRUGS (1)
  1. AVONEX [Suspect]
     Indication: MULTIPLE SCLEROSIS
     Route: 030
     Dates: start: 20070401, end: 20090525

REACTIONS (3)
  - CENTRAL NERVOUS SYSTEM LESION [None]
  - CONVULSION [None]
  - NUCLEAR MAGNETIC RESONANCE IMAGING ABNORMAL [None]
